FAERS Safety Report 17699893 (Version 1)
Quarter: 2020Q2

REPORT INFORMATION
  Report Type: Report from Study
  Country: GB (occurrence: GB)
  Receive Date: 20200423
  Receipt Date: 20200423
  Transmission Date: 20200714
  Serious: Yes (Other)
  Sender: FDA-Public Use
  Company Number: GB-ROCHE-2585921

PATIENT
  Sex: Female

DRUGS (8)
  1. OMEPRAZOLE. [Concomitant]
     Active Substance: OMEPRAZOLE
  2. LORATADINE. [Concomitant]
     Active Substance: LORATADINE
  3. CANDESARTAN. [Concomitant]
     Active Substance: CANDESARTAN
  4. ROACTEMRA [Suspect]
     Active Substance: TOCILIZUMAB
     Indication: RHEUMATOID ARTHRITIS
     Route: 058
     Dates: start: 2019
  5. INSULIN GLULISINE [Concomitant]
     Active Substance: INSULIN GLULISINE
  6. METFORMIN [Concomitant]
     Active Substance: METFORMIN HYDROCHLORIDE
  7. ZOMORPH [Concomitant]
     Active Substance: MORPHINE SULFATE
  8. HAYFEVER [Concomitant]

REACTIONS (1)
  - Lower respiratory tract infection [Unknown]
